FAERS Safety Report 10155037 (Version 4)
Quarter: 2015Q2

REPORT INFORMATION
  Report Type: Spontaneous
  Country: IT (occurrence: IT)
  Receive Date: 20140506
  Receipt Date: 20150513
  Transmission Date: 20150821
  Serious: Yes (Hospitalization)
  Sender: FDA-Public Use
  Company Number: IT-PFIZER INC-2014120376

PATIENT
  Age: 47 Year
  Sex: Female

DRUGS (2)
  1. LEXOTAN [Suspect]
     Active Substance: BROMAZEPAM
     Dosage: 150 GTT, SINGLE
     Route: 048
     Dates: start: 20130930, end: 20130930
  2. TRIAZOLAM. [Suspect]
     Active Substance: TRIAZOLAM
     Dosage: 2.5 MG, SINGLE
     Route: 048
     Dates: start: 20130930, end: 20130930

REACTIONS (5)
  - Overdose [Recovering/Resolving]
  - Suicide attempt [Recovering/Resolving]
  - Amnesia [Recovering/Resolving]
  - Somnolence [Recovering/Resolving]
  - Drug abuse [Recovering/Resolving]

NARRATIVE: CASE EVENT DATE: 20130930
